FAERS Safety Report 21008103 (Version 3)
Quarter: 2022Q3

REPORT INFORMATION
  Report Type: Other
  Country: US (occurrence: None)
  Receive Date: 20220627
  Receipt Date: 20220816
  Transmission Date: 20221027
  Serious: Yes (Death)
  Sender: FDA-Public Use
  Company Number: US-ROCHE-3124564

PATIENT
  Age: 82 Year
  Sex: Male

DRUGS (14)
  1. ALECENSA [Suspect]
     Active Substance: ALECTINIB HYDROCHLORIDE
     Indication: Metastases to bone
     Dosage: TAKE 3 CAPSULE(S) BY MOUTH TWICE A DAY WITH MEALS
     Route: 048
  2. VITAMIN C [Concomitant]
     Active Substance: ASCORBIC ACID
     Dosage: TAKE 1,000 MG BY MOUTH DAILY
  3. LIPITOR [Concomitant]
     Active Substance: ATORVASTATIN CALCIUM
     Dosage: TAKE 80 MG BY MOUTH DAILY
  4. ASPIRIN [Concomitant]
     Active Substance: ASPIRIN
     Dosage: TAKE 81 MG BY MOUTH DAILY
  5. CALTRATE [Concomitant]
     Active Substance: CALCIUM CARBONATE
     Dosage: TAKE 1,200 MG BY MOUTH DAILY
  6. CHOLECALCIFEROL [Concomitant]
     Active Substance: CHOLECALCIFEROL
     Dosage: TAKE 2,000 UNITES BY MOUTH DAILY
  7. FISH OIL [Concomitant]
     Active Substance: FISH OIL
     Dosage: TAKE BY MOUTH DAILY
  8. NEURONTIN [Concomitant]
     Active Substance: GABAPENTIN
     Dosage: TAKE 1 MG BY MOUTH 2 TIMES DAILY
  9. GLUCOTROL [Concomitant]
     Active Substance: GLIPIZIDE
     Dosage: PATIENT TAKING DIFFERENTLY: TAKE 10 MG BY MOUTH 2 TIME DAILY (BEFORE MEALS)
  10. MAGNESIUM OXIDE [Concomitant]
     Active Substance: MAGNESIUM OXIDE
     Dosage: TAKE BY MOUTH DAILY
  11. GLUCOPHAGE [Concomitant]
     Active Substance: METFORMIN HYDROCHLORIDE
     Dosage: TAKE 1 TABLET BY MOUTH DAILY (WITH BREAKFAST + DINNER)
  12. VITAMINS [Concomitant]
     Active Substance: VITAMINS
     Dosage: TAKE 1 TABLET BY MOUTH DAILY
  13. FLOMAX [Concomitant]
     Active Substance: TAMSULOSIN HYDROCHLORIDE
     Dosage: TAKE 0.4 MG BY MOUTH DAILY
  14. ULTRAM [Concomitant]
     Active Substance: TRAMADOL HYDROCHLORIDE
     Dosage: 1 TABLET IN THE MORNING, 1 TABLET AT LUNCH, 1 TABLET IN THE AFTERNOON AND 1 TABLET AT NIGHT

REACTIONS (1)
  - Death [Fatal]

NARRATIVE: CASE EVENT DATE: 20220622
